FAERS Safety Report 4623646-4 (Version None)
Quarter: 2005Q1

REPORT INFORMATION
  Report Type: 
  Country: None (occurrence: None)
  Receive Date: 20050331
  Receipt Date: 20050208
  Transmission Date: 20050727
  Serious: Yes (Death, Hospitalization)
  Sender: FDA-Public Use
  Company Number: US-ABBOTT-05P-163-0289947-01

PATIENT
  Sex: Male

DRUGS (6)
  1. RITONAVIR SOFT GELATIN CAPSULES [Suspect]
     Indication: HIV INFECTION
     Route: 048
     Dates: start: 20030224, end: 20050201
  2. TIPRANAVIR [Concomitant]
     Indication: HIV INFECTION
     Dates: start: 20030224, end: 20050201
  3. LAMIVUDINE [Concomitant]
     Indication: HIV INFECTION
     Dates: start: 20020603
  4. AMLODIPINE [Concomitant]
     Indication: HYPERTENSION
     Route: 048
     Dates: start: 20041008
  5. MEGESTROL ACETATE [Concomitant]
     Indication: HIV INFECTION
     Route: 048
     Dates: start: 20020501, end: 20050201
  6. ITRACONAZOLE [Concomitant]
     Indication: FUNGAL INFECTION
     Route: 048
     Dates: start: 20030923, end: 20050201

REACTIONS (4)
  - CONVULSION [None]
  - PNEUMONIA [None]
  - RENAL FAILURE [None]
  - SEPSIS [None]
